FAERS Safety Report 4417734-5 (Version None)
Quarter: 2004Q3

REPORT INFORMATION
  Report Type: 
  Country: None (occurrence: None)
  Receive Date: 20040803
  Receipt Date: 20040721
  Transmission Date: 20050211
  Serious: Yes (Hospitalization)
  Sender: FDA-Public Use
  Company Number: 2003125959

PATIENT
  Age: 56 Year
  Sex: Female

DRUGS (2)
  1. CITALOR (ATORVASTATIN) [Suspect]
     Indication: DYSLIPIDAEMIA
     Dosage: 10 MG (1 IN 1 D), ORAL
     Route: 048
     Dates: start: 19990101
  2. GLIBOMET (GLIBENCLAMIDE, METFORMIN HYDROCHLORIDE) [Concomitant]

REACTIONS (5)
  - BURNING SENSATION [None]
  - CHOLELITHIASIS [None]
  - DUODENAL ULCER [None]
  - GASTRIC ULCER [None]
  - TREMOR [None]
